FAERS Safety Report 17748177 (Version 2)
Quarter: 2020Q2

REPORT INFORMATION
  Report Type: Other
  Country: HR (occurrence: HR)
  Receive Date: 20200506
  Receipt Date: 20200513
  Transmission Date: 20200714
  Serious: Yes (Other)
  Sender: FDA-Public Use
  Company Number: HR-CELLTRION INC.-2020HR022062

PATIENT

DRUGS (1)
  1. REMSIMA [Suspect]
     Active Substance: INFLIXIMAB
     Indication: COLITIS ULCERATIVE
     Dosage: 300 MG; IV (DOSE FORM: INFUSION AMPOULES, DRY VIALS/BOTTLES)
     Route: 042
     Dates: start: 20170927, end: 20200409

REACTIONS (3)
  - Colitis ulcerative [Not Recovered/Not Resolved]
  - Underdose [Unknown]
  - Therapeutic response decreased [Not Recovered/Not Resolved]

NARRATIVE: CASE EVENT DATE: 20200313
